FAERS Safety Report 5494037-1 (Version None)
Quarter: 2007Q4

REPORT INFORMATION
  Report Type: 
  Country: None (occurrence: None)
  Receive Date: 20071023
  Receipt Date: 20071011
  Transmission Date: 20080405
  Serious: Yes (Other)
  Sender: FDA-Public Use
  Company Number: US-PFIZER INC-2007085814

PATIENT
  Sex: Female
  Weight: 81.6 kg

DRUGS (4)
  1. CHANTIX [Suspect]
     Indication: SMOKING CESSATION THERAPY
  2. BUSPAR [Concomitant]
  3. LITHIUM [Concomitant]
  4. LAMICTAL [Concomitant]

REACTIONS (4)
  - CRYING [None]
  - DEPRESSION [None]
  - NAUSEA [None]
  - SUICIDAL IDEATION [None]
